FAERS Safety Report 10155239 (Version 1)
Quarter: 2014Q2

REPORT INFORMATION
  Report Type: Spontaneous
  Country: DE (occurrence: DE)
  Receive Date: 20140506
  Receipt Date: 20140506
  Transmission Date: 20141212
  Serious: Yes (Other)
  Sender: FDA-Public Use
  Company Number: DE-ACTAVIS-2014-09189

PATIENT
  Age: 37 Year
  Sex: Female

DRUGS (1)
  1. DIAZEPAM (UNKNOWN) [Suspect]
     Indication: SLEEP DISORDER
     Dosage: UP TO 20 MG DAILY
     Route: 065

REACTIONS (8)
  - Drug dependence [Recovered/Resolved]
  - Drug withdrawal syndrome [Recovered/Resolved]
  - Hypertension [Recovered/Resolved]
  - Tremor [Recovered/Resolved]
  - Tachycardia [Recovered/Resolved]
  - Anxiety [Recovered/Resolved]
  - Sleep disorder [Recovered/Resolved]
  - Drug abuse [Recovered/Resolved]
